FAERS Safety Report 5279843-0 (Version None)
Quarter: 2007Q1

REPORT INFORMATION
  Report Type: 
  Country: None (occurrence: None)
  Receive Date: 20070327
  Receipt Date: 20070327
  Transmission Date: 20070707
  Serious: No
  Sender: FDA-Public Use
  Company Number: None

PATIENT
  Sex: Female
  Weight: 77.1115 kg

DRUGS (1)
  1. ZOLOFT [Suspect]
     Indication: ELECTROLYTE IMBALANCE
     Dosage: 200 MG  DAILY   PO
     Route: 048

REACTIONS (6)
  - AGGRESSION [None]
  - ANXIETY [None]
  - DRUG HYPERSENSITIVITY [None]
  - PANIC ATTACK [None]
  - PHARMACEUTICAL PRODUCT COMPLAINT [None]
  - SUICIDAL IDEATION [None]
